FAERS Safety Report 18581044 (Version 1)
Quarter: 2020Q4

REPORT INFORMATION
  Report Type: Spontaneous
  Country: US (occurrence: US)
  Receive Date: 20201204
  Receipt Date: 20201204
  Transmission Date: 20210114
  Serious: Yes (Hospitalization, Other)
  Sender: FDA-Public Use
  Company Number: US-STRIDES ARCOLAB LIMITED-2020SP014945

PATIENT
  Age: 51 Year
  Sex: Male

DRUGS (2)
  1. OXYCODONE AND ACETAMINOPHEN [Concomitant]
     Active Substance: ACETAMINOPHEN\OXYCODONE HYDROCHLORIDE
     Indication: HYPOAESTHESIA
     Dosage: 5 MG/ 325 MG, EVERY 4 HOURS, AS NEEDED
     Route: 048
  2. GABAPENTIN. [Suspect]
     Active Substance: GABAPENTIN
     Indication: MERALGIA PARAESTHETICA
     Dosage: 600 MILLIGRAM, QID
     Route: 048

REACTIONS (3)
  - Drug intolerance [Recovered/Resolved]
  - Sexual dysfunction [Recovered/Resolved]
  - Somnolence [Recovered/Resolved]
